FAERS Safety Report 8422364-4 (Version None)
Quarter: 2012Q2

REPORT INFORMATION
  Report Type: 
  Country: None (occurrence: None)
  Receive Date: 20120604
  Receipt Date: 20120530
  Transmission Date: 20120825
  Serious: Yes (Disabling, Other)
  Sender: FDA-Public Use
  Company Number: 2009-200158-NL

PATIENT
  Age: 32 Year
  Sex: Female
  Weight: 95.2554 kg

DRUGS (15)
  1. NUVARING [Suspect]
     Indication: CONTRACEPTION
  2. AMITRIPTYLINE HCL [Concomitant]
  3. PROPRANOLOL HYDROCHLORIDE [Concomitant]
  4. SERTRALINE HYDROCHLORIDE [Concomitant]
  5. ELETRIPTAN HYDROBROMIDE [Concomitant]
  6. MAXALT [Concomitant]
  7. ACETAMINOPHEN [Concomitant]
  8. AZELASTINE HCL [Concomitant]
  9. FROVA [Concomitant]
  10. FIORICET [Concomitant]
  11. MOMETASONE FUROATE [Concomitant]
  12. HYDROCODONE BITARTRATE + ACETAMINOPHEN [Concomitant]
  13. NAPROXEN [Concomitant]
  14. DROSPIRENONE AND ETHINYL ESTRADIOL [Suspect]
     Indication: PRODUCT USED FOR UNKNOWN INDICATION
  15. ERYTHROMYCIN [Concomitant]

REACTIONS (25)
  - CHEST PAIN [None]
  - LIVER DISORDER [None]
  - MIGRAINE [None]
  - LARYNGITIS [None]
  - MUSCULOSKELETAL PAIN [None]
  - PAIN [None]
  - OEDEMA PERIPHERAL [None]
  - EAR PAIN [None]
  - ARRHYTHMIA [None]
  - INTERVERTEBRAL DISC DEGENERATION [None]
  - APHONIA [None]
  - VOMITING [None]
  - HEPATIC STEATOSIS [None]
  - OROPHARYNGEAL PAIN [None]
  - DRUG INEFFECTIVE [None]
  - NAUSEA [None]
  - NECK PAIN [None]
  - CROHN'S DISEASE [None]
  - INTERVERTEBRAL DISC PROTRUSION [None]
  - PALPITATIONS [None]
  - DYSPNOEA [None]
  - PAIN IN EXTREMITY [None]
  - MULTIPLE ALLERGIES [None]
  - POST-TRAUMATIC PAIN [None]
  - MUSCLE SPASMS [None]
